FAERS Safety Report 9553835 (Version 1)
Quarter: 2013Q3

REPORT INFORMATION
  Report Type: Spontaneous
  Country: US (occurrence: US)
  Receive Date: 20130925
  Receipt Date: 20130925
  Transmission Date: 20140515
  Serious: Yes (Hospitalization, Other)
  Sender: FDA-Public Use
  Company Number: US-ACTAVIS-2013-16622

PATIENT
  Age: 61 Year
  Sex: Female

DRUGS (4)
  1. BACLOFEN (WATSON LABORATORIES) [Suspect]
     Indication: MUSCLE SPASTICITY
     Dosage: UNK, UNKNOWN
     Route: 065
  2. AMPYRA [Suspect]
     Indication: MULTIPLE SCLEROSIS
     Dosage: 10 MG, BID
     Route: 048
     Dates: start: 2011
  3. VITAMINS NOS [Concomitant]
     Indication: PRODUCT USED FOR UNKNOWN INDICATION
     Dosage: UNK, UNKNOWN
     Route: 065
  4. VESICARE [Concomitant]
     Indication: PRODUCT USED FOR UNKNOWN INDICATION
     Dosage: UNK, UNKNOWN
     Route: 065

REACTIONS (3)
  - Convulsion [Recovered/Resolved]
  - Delirium [Unknown]
  - Urinary tract infection [Recovered/Resolved]
